FAERS Safety Report 4845435-8 (Version None)
Quarter: 2005Q4

REPORT INFORMATION
  Report Type: 
  Country: None (occurrence: None)
  Receive Date: 20051125
  Receipt Date: 20051114
  Transmission Date: 20060501
  Serious: Yes (Hospitalization)
  Sender: FDA-Public Use
  Company Number: HQWYE548214NOV05

PATIENT
  Age: 73 Year
  Sex: Female

DRUGS (6)
  1. CORDARONE [Suspect]
     Indication: ATRIAL FIBRILLATION
     Dosage: 200 MG 1X PER 1 DAY
     Route: 048
  2. ALDALIX (FUROSEMIDE/SPIRONOLACTONE) [Suspect]
     Dosage: 70 MG 1X PER 1DAY
     Route: 048
     Dates: start: 20050601, end: 20050622
  3. MEDIATOR (BENFLUOREX HYDROCHLORIDE) [Suspect]
     Indication: INSULIN-REQUIRING TYPE II DIABETES MELLITUS
     Route: 048
     Dates: start: 20050601, end: 20050622
  4. DILTIAZEM HYDROCHLORIDE [Suspect]
     Dosage: 300 MG 1X PER 1 DAY
     Route: 048
     Dates: start: 20050601
  5. NOVOMIX (INSULIN ASPART) [Suspect]
     Indication: INSULIN-REQUIRING TYPE II DIABETES MELLITUS
     Dosage: 38 IU 1X PER 1 DAY
     Route: 058
  6. PREVISCAN (FLUINDIONE) [Suspect]
     Dosage: CYCLICALLY: 10 MG DAILY DURING 2 DAYS AND 15 MG ON THE THIRD
     Route: 048

REACTIONS (11)
  - ANOREXIA [None]
  - ASTHENIA [None]
  - BLOOD BICARBONATE DECREASED [None]
  - BLOOD GLUCOSE INCREASED [None]
  - DEHYDRATION [None]
  - HYPERKALAEMIA [None]
  - HYPONATRAEMIA [None]
  - NAUSEA [None]
  - PLATELET COUNT INCREASED [None]
  - THIRST [None]
  - VOLUME BLOOD DECREASED [None]
